FAERS Safety Report 7909839-9 (Version None)
Quarter: 2011Q4

REPORT INFORMATION
  Report Type: 
  Country: None (occurrence: None)
  Receive Date: 20111111
  Receipt Date: 20111107
  Transmission Date: 20120403
  Serious: Yes (Disabling)
  Sender: FDA-Public Use
  Company Number: IT-MERCK-1111ITA00012

PATIENT
  Age: 87 Year
  Sex: Female

DRUGS (6)
  1. LANSOPRAZOLE [Concomitant]
     Route: 065
  2. FUROSEMIDE [Concomitant]
     Route: 065
  3. PENTOXIFYLLINE [Concomitant]
     Route: 065
  4. FOSAMAX [Suspect]
     Indication: OSTEOPOROSIS
     Route: 048
     Dates: start: 20000101, end: 20100101
  5. TICLOPIDINE HYDROCHLORIDE [Concomitant]
     Route: 065
  6. CLODRONATE DISODIUM [Suspect]
     Indication: OSTEOPOROSIS
     Route: 030
     Dates: start: 20100101, end: 20110610

REACTIONS (1)
  - OSTEONECROSIS [None]
